FAERS Safety Report 25691801 (Version 2)
Quarter: 2025Q3

REPORT INFORMATION
  Report Type: Spontaneous
  Country: US (occurrence: US)
  Receive Date: 20250818
  Receipt Date: 20250912
  Transmission Date: 20251021
  Serious: No
  Sender: CALLIDITAS THERAPEUTICS AB
  Company Number: US-Calliditas-2025CAL02397

PATIENT
  Age: 51 Year
  Sex: Male

DRUGS (12)
  1. TARPEYO [Suspect]
     Active Substance: BUDESONIDE
     Indication: IgA nephropathy
     Route: 048
     Dates: start: 20250628
  2. ALLOPURINOL [Concomitant]
     Active Substance: ALLOPURINOL
  3. AMLODIPINE [Concomitant]
     Active Substance: AMLODIPINE BESYLATE
  4. ATORVASTATIN [Concomitant]
     Active Substance: ATORVASTATIN
  5. CALCITRIOL [Concomitant]
     Active Substance: CALCITRIOL
  6. CALCITRIOL [Concomitant]
     Active Substance: CALCITRIOL
  7. FARXIGA [Concomitant]
     Active Substance: DAPAGLIFLOZIN PROPANEDIOL
  8. IRBESARTAN [Concomitant]
     Active Substance: IRBESARTAN
  9. LOKELMA [SODIUM ZIRCONIUM CYCLOSILICATE] [Concomitant]
  10. SKYRIZI [Concomitant]
     Active Substance: RISANKIZUMAB-RZAA
  11. VASCEPA [Concomitant]
     Active Substance: ICOSAPENT ETHYL
  12. VITAMIN D2 [Concomitant]
     Active Substance: ERGOCALCIFEROL

REACTIONS (4)
  - Blood pressure increased [Unknown]
  - Blood glucose increased [Not Recovered/Not Resolved]
  - Weight increased [Unknown]
  - Increased appetite [Unknown]
